FAERS Safety Report 6030477-X (Version None)
Quarter: 2009Q1

REPORT INFORMATION
  Report Type: 
  Country: None (occurrence: None)
  Receive Date: 20090106
  Receipt Date: 20090106
  Transmission Date: 20090719
  Serious: No
  Sender: FDA-Public Use
  Company Number: None

PATIENT
  Sex: Female
  Weight: 67.1324 kg

DRUGS (2)
  1. LEVAQUIN [Suspect]
     Indication: BRONCHITIS
     Dosage: 500MG DAILY TABLET
     Dates: start: 20090102
  2. LEVAQUIN [Suspect]
     Indication: PNEUMONIA
     Dosage: 500MG DAILY TABLET
     Dates: start: 20090102

REACTIONS (1)
  - TENDON PAIN [None]
